FAERS Safety Report 16195048 (Version 2)
Quarter: 2019Q2

REPORT INFORMATION
  Report Type: Report from Study
  Country: FR (occurrence: FR)
  Receive Date: 20190415
  Receipt Date: 20190424
  Transmission Date: 20190711
  Serious: Yes (Hospitalization, Other)
  Sender: FDA-Public Use
  Company Number: FR-BRISTOL-MYERS SQUIBB COMPANY-BMS-2019-036082

PATIENT
  Age: 68 Year
  Sex: Male
  Weight: 72.2 kg

DRUGS (16)
  1. TG4010 [Suspect]
     Active Substance: INVESTIGATIONAL PRODUCT
     Indication: NON-SMALL CELL LUNG CANCER
     Dosage: 1 DOSAGE FORM = 1 X 10E8 PFU
     Route: 058
     Dates: start: 20181221, end: 20190222
  2. GLUCOPHAGE [Concomitant]
     Active Substance: METFORMIN HYDROCHLORIDE
     Indication: DIABETES MELLITUS
     Dosage: 850 MILLIGRAM, QD
     Route: 048
     Dates: start: 201701
  3. CISPLATIN. [Suspect]
     Active Substance: CISPLATIN
     Indication: NON-SMALL CELL LUNG CANCER
     Dosage: 140 MILLIGRAM
     Route: 041
     Dates: start: 20181221, end: 20190222
  4. SALMETEROL [Concomitant]
     Active Substance: SALMETEROL
     Indication: DYSPNOEA
     Dosage: 50 MICROGRAM, Q12H
     Route: 055
     Dates: start: 201701
  5. AACIDEXAM                          /00016001/ [Concomitant]
     Indication: PROPHYLAXIS
     Dosage: 10 MILLIGRAM, Q3WK
     Route: 042
     Dates: start: 20181221
  6. AMLODIPINE [Concomitant]
     Active Substance: AMLODIPINE BESYLATE
     Indication: HYPERTENSION
     Dosage: 5 MILLIGRAM, QD
     Route: 048
     Dates: start: 2011
  7. LITICAN                            /00690802/ [Concomitant]
     Indication: PROPHYLAXIS
     Dosage: 150 MILLIGRAM, Q3WK
     Route: 042
     Dates: start: 20181221
  8. L-THYROXINE                        /00068001/ [Concomitant]
     Active Substance: LEVOTHYROXINE
     Indication: HYPOTHYROIDISM
     Dosage: 100 MICROGRAM
     Route: 048
     Dates: start: 2010
  9. NIVOLUMAB [Suspect]
     Active Substance: NIVOLUMAB
     Indication: NON-SMALL CELL LUNG CANCER
     Dosage: 360 MILLIGRAM
     Route: 041
     Dates: start: 20181221, end: 20190222
  10. TRADONAL [Concomitant]
     Active Substance: TRAMADOL HYDROCHLORIDE
     Indication: BACK PAIN
     Dosage: 50 MILLIGRAM, PRN
     Route: 048
     Dates: start: 201809
  11. ASAFLOW [Concomitant]
     Active Substance: ASPIRIN
     Indication: HYPERTENSION
     Dosage: 80 MILLIGRAM, QD
     Route: 048
     Dates: start: 2011
  12. AKYNZEO [Concomitant]
     Active Substance: NETUPITANT\PALONOSETRON HYDROCHLORIDE
     Indication: PROPHYLAXIS
     Dosage: 300 MILLIGRAM, Q3WK
     Route: 048
     Dates: start: 20181221
  13. VITAMINE B12 [Concomitant]
     Active Substance: CYANOCOBALAMIN
     Indication: PROPHYLAXIS
     Dosage: 1 DOSAGE FORM = 1 VIAL, Q3WK
     Route: 030
     Dates: start: 20181221
  14. PEMETREXED DISODIUM [Suspect]
     Active Substance: PEMETREXED DISODIUM
     Indication: NON-SMALL CELL LUNG CANCER
     Dosage: 900 MILLIGRAM
     Route: 041
     Dates: start: 20181221, end: 20190222
  15. FLUTICASONE PROPIONATE. [Concomitant]
     Active Substance: FLUTICASONE PROPIONATE
     Indication: DYSPNOEA
     Dosage: 500 MICROGRAM, Q12H
     Route: 055
     Dates: start: 201701
  16. PANTOMED                           /01263204/ [Concomitant]
     Active Substance: PANTOPRAZOLE SODIUM
     Indication: OESOPHAGITIS
     Dosage: 20 MILLIGRAM, QD
     Route: 048
     Dates: start: 20150313

REACTIONS (1)
  - Cellulitis [Not Recovered/Not Resolved]

NARRATIVE: CASE EVENT DATE: 20190312
